FAERS Safety Report 14140236 (Version 1)
Quarter: 2017Q4

REPORT INFORMATION
  Report Type: Spontaneous
  Country: US (occurrence: None)
  Receive Date: 20171027
  Receipt Date: 20171027
  Transmission Date: 20180321
  Serious: Yes (Hospitalization)
  Sender: FDA-Public Use
  Company Number: None

PATIENT
  Age: 61 Year
  Sex: Female
  Weight: 81.19 kg

DRUGS (1)
  1. VITAMIN D3 [Suspect]
     Active Substance: CHOLECALCIFEROL
     Indication: VITAMIN D DEFICIENCY
     Route: 048

REACTIONS (12)
  - Nasopharyngitis [None]
  - Urine leukocyte esterase positive [None]
  - Sepsis [None]
  - Pulmonary congestion [None]
  - Leukocytosis [None]
  - Urinary tract infection [None]
  - Fatigue [None]
  - Tachycardia [None]
  - Pulmonary hypertension [None]
  - Pneumonia [None]
  - White blood cells urine positive [None]
  - Cough [None]

NARRATIVE: CASE EVENT DATE: 20171022
